FAERS Safety Report 7715107-0 (Version None)
Quarter: 2011Q3

REPORT INFORMATION
  Report Type: 
  Country: None (occurrence: None)
  Receive Date: 20110829
  Receipt Date: 20110817
  Transmission Date: 20111222
  Serious: Yes (Other)
  Sender: FDA-Public Use
  Company Number: JP-ELI_LILLY_AND_COMPANY-JP201108005848

PATIENT
  Age: 61 Year
  Sex: Male

DRUGS (1)
  1. GEMZAR [Suspect]
     Indication: GALLBLADDER CANCER STAGE IV
     Route: 042

REACTIONS (4)
  - PULMONARY EMBOLISM [None]
  - JUGULAR VEIN THROMBOSIS [None]
  - PYREXIA [None]
  - CHILLS [None]
